FAERS Safety Report 7460282-9 (Version None)
Quarter: 2011Q2

REPORT INFORMATION
  Report Type: 
  Country: None (occurrence: None)
  Receive Date: 20110418
  Receipt Date: 20110406
  Transmission Date: 20111010
  Serious: Yes (Death, Hospitalization)
  Sender: FDA-Public Use
  Company Number: THYM-1001250

PATIENT
  Age: 57 Year
  Sex: Male
  Weight: 66 kg

DRUGS (11)
  1. ANTI-THYMOCYTE GLOBULIN RABBIT NOS [Suspect]
     Indication: APLASTIC ANAEMIA
     Dosage: 2.5 MG, Q1HR, INTRAVENOUS; 250 MG, Q12HR, INTRAVENOUS
     Route: 042
     Dates: start: 20090810, end: 20090812
  2. ANTI-THYMOCYTE GLOBULIN RABBIT NOS [Suspect]
     Indication: APLASTIC ANAEMIA
     Dosage: 2.5 MG, Q1HR, INTRAVENOUS; 250 MG, Q12HR, INTRAVENOUS
     Route: 042
     Dates: start: 20090810, end: 20090810
  3. CYCLOSPORINE [Concomitant]
  4. TEICOPLANIN (TEICOPLANIN) [Concomitant]
  5. RED BLOOD CELLS, CONCENTRATED (RED BLOOD CELLS, CONCENTRATED) [Concomitant]
  6. FILGRASTIM (FILGRASTIM) [Concomitant]
  7. CLINDAMYCIN PHOSPHATE [Concomitant]
  8. PLATELETS, CONCENTRATED (PLATELETS, CONCENTRATED) [Concomitant]
  9. PROTON PUMP INHIBITORS [Concomitant]
  10. VORICONAZOLE [Concomitant]
  11. METHYLPREDNISOLONE [Concomitant]

REACTIONS (5)
  - GASTRITIS BACTERIAL [None]
  - PANCYTOPENIA [None]
  - BACTERIAL SEPSIS [None]
  - STENOTROPHOMONAS SEPSIS [None]
  - CEREBRAL HAEMORRHAGE [None]
